FAERS Safety Report 5434265-4 (Version None)
Quarter: 2007Q3

REPORT INFORMATION
  Report Type: 
  Country: None (occurrence: None)
  Receive Date: 20070828
  Receipt Date: 20070828
  Transmission Date: 20080115
  Serious: Yes (Hospitalization)
  Sender: FDA-Public Use
  Company Number: None

PATIENT
  Sex: Male
  Weight: 51 kg

DRUGS (7)
  1. DIAZEPAM [Suspect]
     Indication: GRAND MAL CONVULSION
     Dosage: 10 MG PRN SEIZURE } 2 MIN RECTAL
     Route: 054
     Dates: start: 20060207, end: 20070806
  2. CARBAMAZEPINE [Concomitant]
  3. VALPROIC ACID [Concomitant]
  4. LEVOTHYROXINE SODIUM [Concomitant]
  5. METOCLOPRAMIDE [Concomitant]
  6. OMEPRAZOLE [Concomitant]
  7. FERROUS SULFATE TAB [Concomitant]

REACTIONS (4)
  - BLOOD PRESSURE DECREASED [None]
  - CARDIO-RESPIRATORY ARREST [None]
  - LETHARGY [None]
  - OXYGEN SATURATION DECREASED [None]
